FAERS Safety Report 7455296-9 (Version None)
Quarter: 2011Q2

REPORT INFORMATION
  Report Type: 
  Country: None (occurrence: None)
  Receive Date: 20110503
  Receipt Date: 20110428
  Transmission Date: 20111010
  Serious: Yes (Other)
  Sender: FDA-Public Use
  Company Number: DE-PFIZER INC-2011092221

PATIENT
  Age: 50 Year
  Sex: Female

DRUGS (2)
  1. TREVILOR RETARD [Suspect]
     Dosage: UNKNOWN DOSE (FREQUENCY UNKNOWN); INCREASED IN COMPARISON TO PREVIOUS DOSE
  2. TREVILOR RETARD [Suspect]
     Dosage: UNKNOWN DOSE FOR SEVERAL YEARS

REACTIONS (3)
  - OBESITY [None]
  - AGITATION [None]
  - ANXIETY [None]
